FAERS Safety Report 7899888-1 (Version None)
Quarter: 2011Q4

REPORT INFORMATION
  Report Type: 
  Country: None (occurrence: None)
  Receive Date: 20111107
  Receipt Date: 20110928
  Transmission Date: 20120403
  Serious: No
  Sender: FDA-Public Use
  Company Number: US-AMGEN-USASP2011044945

PATIENT
  Age: 34 Year
  Sex: Male
  Weight: 90.249 kg

DRUGS (2)
  1. ENBREL [Suspect]
     Indication: RHEUMATOID ARTHRITIS
     Dosage: 50 MG, QWK
     Route: 058
     Dates: start: 20110609
  2. TREXALL [Concomitant]
     Dosage: 1 MG, UNK
     Dates: start: 20100101

REACTIONS (6)
  - ARTHRALGIA [None]
  - ARTHROPATHY [None]
  - BLOOD CREATININE DECREASED [None]
  - PAIN IN EXTREMITY [None]
  - BLOOD BILIRUBIN INCREASED [None]
  - ASTHENIA [None]
